FAERS Safety Report 8604345-0 (Version None)
Quarter: 2012Q3

REPORT INFORMATION
  Report Type: 
  Country: None (occurrence: None)
  Receive Date: 20120820
  Receipt Date: 20120809
  Transmission Date: 20120928
  Serious: Yes (Hospitalization)
  Sender: FDA-Public Use
  Company Number: US-JNJFOC-20120806313

PATIENT
  Sex: Female
  Weight: 54.43 kg

DRUGS (1)
  1. REMICADE [Suspect]
     Indication: RHEUMATOID ARTHRITIS
     Route: 042
     Dates: start: 20120718, end: 20120718

REACTIONS (6)
  - GAIT DISTURBANCE [None]
  - DEHYDRATION [None]
  - ARTHRALGIA [None]
  - MYALGIA [None]
  - TYPE IV HYPERSENSITIVITY REACTION [None]
  - PNEUMONIA [None]
